FAERS Safety Report 5187366-2 (Version None)
Quarter: 2006Q4

REPORT INFORMATION
  Report Type: 
  Country: None (occurrence: None)
  Receive Date: 20061220
  Receipt Date: 20060518
  Transmission Date: 20070319
  Serious: No
  Sender: FDA-Public Use
  Company Number: US-AMGEN-US180015

PATIENT
  Sex: Female

DRUGS (8)
  1. ENBREL [Suspect]
     Indication: PSORIATIC ARTHROPATHY
     Route: 065
     Dates: start: 20050401
  2. LASIX [Concomitant]
     Route: 065
  3. METHOTREXATE [Concomitant]
     Route: 065
  4. BUPROPION HCL [Concomitant]
     Route: 065
  5. POTASSIUM CHLORIDE [Concomitant]
     Route: 065
  6. FOLIC ACID [Concomitant]
     Route: 065
  7. AMBIEN [Concomitant]
     Route: 065
  8. DOVONEX [Concomitant]
     Route: 065

REACTIONS (5)
  - BLOOD CALCIUM INCREASED [None]
  - GLOBULINS INCREASED [None]
  - PLATELET COUNT INCREASED [None]
  - PROTEIN TOTAL INCREASED [None]
  - WHITE BLOOD CELL COUNT INCREASED [None]
